FAERS Safety Report 5647162-6 (Version None)
Quarter: 2008Q1

REPORT INFORMATION
  Report Type: 
  Country: None (occurrence: None)
  Receive Date: 20080228
  Receipt Date: 20080228
  Transmission Date: 20080703
  Serious: Yes (Hospitalization)
  Sender: FDA-Public Use
  Company Number: None

PATIENT
  Sex: Female
  Weight: 65 kg

DRUGS (3)
  1. FLUOROURACIL [Suspect]
     Dosage: 4690 MG
     Dates: start: 20080218, end: 20080218
  2. LEUCOVORIN CALCIUM [Suspect]
     Dosage: 690 MG
     Dates: end: 20080218
  3. ELOXATIN [Suspect]
     Dosage: 145 MG
     Dates: end: 20080218

REACTIONS (1)
  - NO ADVERSE EVENT [None]
